FAERS Safety Report 8159079-6 (Version None)
Quarter: 2012Q1

REPORT INFORMATION
  Report Type: 
  Country: None (occurrence: None)
  Receive Date: 20120223
  Receipt Date: 20120221
  Transmission Date: 20120608
  Serious: Yes (Other)
  Sender: FDA-Public Use
  Company Number: US-PFIZER INC-2010121911

PATIENT
  Sex: Female
  Weight: 66.213 kg

DRUGS (10)
  1. NAPROXEN (ALEVE) [Concomitant]
     Dosage: UNK
  2. VITAMIN-MINERAL COMPOUND TAB [Concomitant]
     Indication: EYE DISORDER
     Dosage: ONE IN THE MORNING AND ONE IN THE EVENING
  3. CHANTIX [Suspect]
     Dosage: 1 MG, 2X/DAY
     Route: 048
     Dates: start: 20101101, end: 20100101
  4. CHANTIX [Suspect]
     Indication: SMOKING CESSATION THERAPY
     Dosage: 0.5 MG, 1X/DAY
     Route: 048
     Dates: start: 20100918, end: 20100901
  5. CHANTIX [Suspect]
     Dosage: 1 MG, 2X/DAY
     Route: 048
     Dates: start: 20100101, end: 20101001
  6. CHANTIX [Suspect]
     Dosage: UNK
     Route: 048
     Dates: start: 20100101, end: 20110101
  7. BONIVA [Concomitant]
     Indication: OSTEOPOROSIS
     Dosage: UNK
  8. JANUVIA [Concomitant]
     Indication: DIABETES MELLITUS
     Dosage: HALF TABLET ONCE A DAY
  9. CYMBALTA [Concomitant]
     Indication: SLEEP DISORDER
     Dosage: ONE IN THE EVENING
  10. CHANTIX [Suspect]
     Dosage: UNK
     Route: 048
     Dates: start: 20100901, end: 20100101

REACTIONS (7)
  - PERSONALITY DISORDER [None]
  - PANIC ATTACK [None]
  - CONFUSIONAL STATE [None]
  - STRESS [None]
  - CHRONIC OBSTRUCTIVE PULMONARY DISEASE [None]
  - ANXIETY [None]
  - ROAD TRAFFIC ACCIDENT [None]
